FAERS Safety Report 22813342 (Version 2)
Quarter: 2023Q4

REPORT INFORMATION
  Report Type: Report from Study
  Country: JP (occurrence: JP)
  Receive Date: 20230811
  Receipt Date: 20231109
  Transmission Date: 20240110
  Serious: Yes (Other)
  Sender: FDA-Public Use
  Company Number: JP-UCBSA-2023039355

PATIENT
  Age: 5 Year
  Sex: Male

DRUGS (2)
  1. LACOSAMIDE [Suspect]
     Active Substance: LACOSAMIDE
     Indication: Partial seizures
     Dosage: 2 MILLIGRAM/KILOGRAM PER DAY
     Route: 048
  2. LACOSAMIDE [Suspect]
     Active Substance: LACOSAMIDE
     Dosage: 10 MILLIGRAM/KILOGRAM PER DAY
     Route: 048

REACTIONS (5)
  - Seizure [Recovered/Resolved]
  - Change in seizure presentation [Recovered/Resolved]
  - Myoclonic epilepsy [Recovered/Resolved]
  - Atonic seizures [Recovered/Resolved]
  - Drug ineffective [Unknown]
